FAERS Safety Report 13718270 (Version 2)
Quarter: 2017Q3

REPORT INFORMATION
  Report Type: Spontaneous
  Country: FR (occurrence: FR)
  Receive Date: 20170705
  Receipt Date: 20170713
  Transmission Date: 20171127
  Serious: Yes (Other)
  Sender: FDA-Public Use
  Company Number: FR-PFIZER INC-2017288361

PATIENT
  Age: 57 Year
  Sex: Male

DRUGS (3)
  1. FOLFIRINOX [Concomitant]
     Active Substance: FLUOROURACIL\IRINOTECAN\LEUCOVORIN\OXALIPLATIN
     Indication: ADENOCARCINOMA PANCREAS
     Dosage: UNK
  2. GEMZAR [Suspect]
     Active Substance: GEMCITABINE HYDROCHLORIDE
     Dosage: UNK, CYCLIC (8 FURTHER CYCLES OF GEMCITABINE)
  3. GEMZAR [Suspect]
     Active Substance: GEMCITABINE HYDROCHLORIDE
     Indication: ADENOCARCINOMA PANCREAS
     Dosage: UNK, CYCLIC (9 CYCLES OF ADJUVANT GEMCITABINE CHEMOTHERAPY)

REACTIONS (1)
  - Thrombotic microangiopathy [Recovered/Resolved]
